FAERS Safety Report 5026446-9 (Version None)
Quarter: 2006Q2

REPORT INFORMATION
  Report Type: 
  Country: None (occurrence: None)
  Receive Date: 20060615
  Receipt Date: 20060606
  Transmission Date: 20061013
  Serious: Yes (Hospitalization)
  Sender: FDA-Public Use
  Company Number: FR-BRISTOL-MYERS SQUIBB COMPANY-13408893

PATIENT
  Age: 67 Year
  Sex: Female

DRUGS (7)
  1. ERBITUX [Suspect]
     Indication: SMALL INTESTINE CARCINOMA
     Route: 042
     Dates: start: 20060425, end: 20060426
  2. ZOPHREN [Suspect]
     Indication: PREMEDICATION
     Route: 048
     Dates: start: 20060424, end: 20060425
  3. ELOXATIN [Suspect]
     Indication: SMALL INTESTINE CARCINOMA
     Route: 042
     Dates: start: 20060425, end: 20060426
  4. EMEND [Suspect]
     Indication: PREMEDICATION
     Route: 048
     Dates: start: 20060425, end: 20060426
  5. FLUOROURACIL [Suspect]
     Indication: SMALL INTESTINE CARCINOMA
     Route: 042
     Dates: start: 20060425, end: 20060426
  6. POLARAMINE [Concomitant]
     Indication: PREMEDICATION
  7. LEUCOVORIN CALCIUM [Concomitant]
     Indication: SMALL INTESTINE CARCINOMA

REACTIONS (2)
  - SEPSIS [None]
  - THROMBOCYTOPENIA [None]
